FAERS Safety Report 6865493-9 (Version None)
Quarter: 2010Q3

REPORT INFORMATION
  Report Type: 
  Country: None (occurrence: None)
  Receive Date: 20100721
  Receipt Date: 20080424
  Transmission Date: 20110219
  Serious: No
  Sender: FDA-Public Use
  Company Number: US-PFIZER INC-2008038732

PATIENT
  Sex: Female
  Weight: 105.9 kg

DRUGS (7)
  1. CHANTIX [Suspect]
     Dates: start: 20070101, end: 20080420
  2. AVANDAMET [Concomitant]
     Indication: DIABETES MELLITUS
  3. SIMVASTATIN [Concomitant]
     Indication: BLOOD CHOLESTEROL INCREASED
  4. METOPROLOL [Concomitant]
  5. LEVOXYL [Concomitant]
     Indication: THYROID DISORDER
  6. ACETYLSALICYLIC ACID [Concomitant]
  7. LISINOPRIL [Concomitant]
     Indication: HYPERTENSION

REACTIONS (8)
  - AGITATION [None]
  - CONSTIPATION [None]
  - HEADACHE [None]
  - IRRITABILITY [None]
  - SOMNOLENCE [None]
  - TREMOR [None]
  - WEIGHT INCREASED [None]
  - WITHDRAWAL SYNDROME [None]
